FAERS Safety Report 23122928 (Version 1)
Quarter: 2023Q4

REPORT INFORMATION
  Report Type: Spontaneous
  Country: CN (occurrence: CN)
  Receive Date: 20231030
  Receipt Date: 20231030
  Transmission Date: 20240109
  Serious: Yes (Hospitalization)
  Sender: FDA-Public Use
  Company Number: CN-CHIESI-2023CHF04973

PATIENT

DRUGS (1)
  1. CLEVIPREX [Suspect]
     Active Substance: CLEVIDIPINE
     Indication: Hypertensive emergency
     Dosage: UNK
     Dates: start: 20221109

REACTIONS (3)
  - Transient ischaemic attack [Recovering/Resolving]
  - Cerebral infarction [Recovering/Resolving]
  - Epilepsy [Recovering/Resolving]

NARRATIVE: CASE EVENT DATE: 20221110
